FAERS Safety Report 5262184-5 (Version None)
Quarter: 2007Q1

REPORT INFORMATION
  Report Type: 
  Country: None (occurrence: None)
  Receive Date: 20070312
  Receipt Date: 20070308
  Transmission Date: 20070707
  Serious: Yes (Hospitalization)
  Sender: FDA-Public Use
  Company Number: JP-BAYER-200710168BYL

PATIENT
  Age: 76 Year
  Sex: Male

DRUGS (5)
  1. AVELOX [Suspect]
     Indication: INFLUENZA
     Dosage: TOTAL DAILY DOSE: 400 MG  UNIT DOSE: 400 MG
     Route: 048
     Dates: start: 20070301, end: 20070301
  2. SPIRIVA [Concomitant]
     Indication: CHRONIC OBSTRUCTIVE PULMONARY DISEASE
     Route: 055
  3. DEPAS [Concomitant]
     Route: 048
  4. MUCODYNE [Concomitant]
     Route: 048
     Dates: start: 20070301
  5. MUCODYNE [Concomitant]
     Route: 048
     Dates: start: 20070301

REACTIONS (2)
  - BLOOD CREATINE PHOSPHOKINASE INCREASED [None]
  - MYOPATHY [None]
